FAERS Safety Report 6402604-3 (Version None)
Quarter: 2009Q4

REPORT INFORMATION
  Report Type: 
  Country: None (occurrence: None)
  Receive Date: 20091009
  Receipt Date: 20090925
  Transmission Date: 20100525
  Serious: Yes (Hospitalization)
  Sender: FDA-Public Use
  Company Number: 2009AL006246

PATIENT
  Age: 82 Year
  Sex: Male

DRUGS (4)
  1. MELOXICAM [Suspect]
     Dosage: 10 MG; QD; UNK
     Dates: start: 20070713, end: 20070731
  2. HEPARIN SODIUM [Concomitant]
  3. WARFARIN SODIUM [Concomitant]
  4. OMEPRAZOLE [Concomitant]

REACTIONS (5)
  - BLOOD CREATININE INCREASED [None]
  - COAGULOPATHY [None]
  - DYSPNOEA [None]
  - INTERNATIONAL NORMALISED RATIO INCREASED [None]
  - PULMONARY EMBOLISM [None]
